FAERS Safety Report 5710907-0 (Version None)
Quarter: 2008Q2

REPORT INFORMATION
  Report Type: 
  Country: None (occurrence: None)
  Receive Date: 20080421
  Receipt Date: 20080409
  Transmission Date: 20081010
  Serious: Yes (Hospitalization)
  Sender: FDA-Public Use
  Company Number: PHHY2008JP02821

PATIENT
  Age: 57 Year
  Sex: Male

DRUGS (7)
  1. NEORAL [Suspect]
     Indication: RENAL TRANSPLANT
     Dosage: 500 MG/DAY
     Route: 048
     Dates: start: 20060927, end: 20070101
  2. SIMULECT [Suspect]
     Indication: RENAL TRANSPLANT
     Dosage: 20 MG/DAY
     Route: 042
     Dates: start: 20060927, end: 20060927
  3. SIMULECT [Suspect]
     Dosage: 20 MG/DAY
     Route: 042
     Dates: start: 20061001, end: 20061001
  4. METHYLPREDNISOLONE [Suspect]
     Indication: RENAL TRANSPLANT
  5. ANTIMETABOLITES [Concomitant]
     Indication: IMMUNOSUPPRESSION
  6. PREDONINE [Suspect]
     Indication: RENAL TRANSPLANT
     Dosage: 60 MG/DAY
     Route: 048
     Dates: start: 20060927
  7. CELLCEPT [Suspect]
     Indication: RENAL TRANSPLANT
     Dosage: 3 G/DAY
     Route: 048
     Dates: start: 20060927, end: 20070101

REACTIONS (4)
  - HYDRONEPHROSIS [None]
  - REMOVAL OF TRANSPLANTED ORGAN [None]
  - URINARY TRACT INFECTION [None]
  - VESICOURETERIC REFLUX [None]
